FAERS Safety Report 16807735 (Version 1)
Quarter: 2019Q3

REPORT INFORMATION
  Report Type: Spontaneous
  Country: US (occurrence: US)
  Receive Date: 20190915
  Receipt Date: 20190915
  Transmission Date: 20191005
  Serious: Yes (Hospitalization)
  Sender: FDA-Public Use
  Company Number: US-JNJFOC-20190906282

PATIENT

DRUGS (1)
  1. DIPHENHYDRAMINE HYDROCHLORIDE. [Suspect]
     Active Substance: DIPHENHYDRAMINE HYDROCHLORIDE
     Indication: PRODUCT USED FOR UNKNOWN INDICATION
     Dosage: 0.36 TO 34 MG/KG, 2.2 TO 46.2 MG/KG, AND 1.1 TO 55 MG/KG
     Route: 048

REACTIONS (10)
  - Medication error [Unknown]
  - Somnolence [Unknown]
  - Agitation [Unknown]
  - Mydriasis [Unknown]
  - Overdose [Unknown]
  - Tachycardia [Unknown]
  - Dystonia [Unknown]
  - Ataxia [Unknown]
  - Hallucination [Unknown]
  - Tremor [Unknown]
